FAERS Safety Report 4588353-5 (Version None)
Quarter: 2005Q1

REPORT INFORMATION
  Report Type: 
  Country: None (occurrence: None)
  Receive Date: 20050215
  Receipt Date: 20050215
  Transmission Date: 20050727
  Serious: Yes (Hospitalization)
  Sender: FDA-Public Use
  Company Number: None

PATIENT
  Age: 47 Year
  Sex: Female
  Weight: 81.6475 kg

DRUGS (3)
  1. CARBOPLATIN [Suspect]
     Indication: RETROPERITONEAL CANCER
     Dosage: AUC 5 D1
     Dates: start: 20041122
  2. CARBOPLATIN [Suspect]
     Indication: RETROPERITONEAL CANCER
     Dosage: AUC 5 D1
     Dates: start: 20041213
  3. GEMICITABINE [Suspect]
     Dosage: 1000 MG/M2 D1, 8

REACTIONS (3)
  - CONTRAST MEDIA REACTION [None]
  - SUPERIOR VENA CAVAL OCCLUSION [None]
  - SWELLING FACE [None]
